FAERS Safety Report 12457741 (Version 3)
Quarter: 2016Q3

REPORT INFORMATION
  Report Type: Spontaneous
  Country: JP (occurrence: JP)
  Receive Date: 20160611
  Receipt Date: 20160701
  Transmission Date: 20161109
  Serious: Yes (Life-Threatening, Hospitalization)
  Sender: FDA-Public Use
  Company Number: JP-AMGEN-JPNSP2016070152

PATIENT
  Age: 66 Year
  Sex: Female
  Weight: 48 kg

DRUGS (16)
  1. FEBURIC [Concomitant]
     Active Substance: FEBUXOSTAT
     Indication: HYPERURICAEMIA
     Dosage: 20 MG, QD
     Route: 048
     Dates: start: 20140401
  2. LASIX [Concomitant]
     Active Substance: FUROSEMIDE
     Indication: OEDEMA PERIPHERAL
     Dosage: 20 MG, QD
     Route: 048
     Dates: start: 20121225
  3. EDIROL [Concomitant]
     Active Substance: ELDECALCITOL
     Dosage: 0.75 MUG, QD AFTER BREAKFAST
     Route: 048
  4. PREDONINE [Concomitant]
     Active Substance: PREDNISOLONE\PREDNISOLONE ACETATE\PREDNISOLONE SODIUM SUCCINATE
     Indication: RHEUMATOID ARTHRITIS
     Dosage: 5 MG, QD
     Route: 048
     Dates: start: 20030416
  5. LYRICA [Concomitant]
     Active Substance: PREGABALIN
     Indication: RHEUMATOID ARTHRITIS
     Dosage: 150 MG, BID
     Route: 048
     Dates: start: 20131015, end: 20160525
  6. PRALIA [Suspect]
     Active Substance: DENOSUMAB
     Indication: OSTEOPOROSIS
     Dosage: 60 MG, QD
     Route: 058
     Dates: start: 20160323, end: 20160323
  7. BREDININ [Concomitant]
     Active Substance: MIZORIBINE
     Indication: RHEUMATOID ARTHRITIS
     Dosage: 100 MG, QD
     Route: 048
     Dates: start: 20140916
  8. PREDNISOLONE. [Concomitant]
     Active Substance: PREDNISOLONE
     Dosage: 1 MG, QD AFTER LUNCH
     Route: 048
  9. LOXONIN [Concomitant]
     Active Substance: LOXOPROFEN SODIUM
     Dosage: 100 MG, QD
     Route: 062
  10. FOLIAMIN [Concomitant]
     Active Substance: FOLIC ACID
     Indication: RHEUMATOID ARTHRITIS
     Dosage: 5 MG, QWK
     Route: 048
     Dates: start: 20030627, end: 20160525
  11. RYTHMODAN [Concomitant]
     Active Substance: DISOPYRAMIDE
     Indication: ATRIAL FIBRILLATION
     Dosage: 50 MG, TID
     Route: 048
     Dates: start: 20060419
  12. PURSENNID [Concomitant]
     Active Substance: SENNOSIDES A AND B
     Dosage: 36 MG, QD
     Route: 048
  13. TAKEPRON [Concomitant]
     Active Substance: LANSOPRAZOLE
     Indication: GASTROOESOPHAGEAL REFLUX DISEASE
     Dosage: 15 MG, QD AFTER BREAKFAST
     Route: 048
     Dates: start: 20030416
  14. METOLATE [Concomitant]
     Active Substance: METHOTREXATE
     Indication: RHEUMATOID ARTHRITIS
     Dosage: 6 MG, QWK
     Route: 048
     Dates: start: 20030627, end: 20160525
  15. ALDACTONE A [Concomitant]
     Active Substance: SPIRONOLACTONE
     Indication: OEDEMA PERIPHERAL
     Dosage: 25 MG, QD
     Route: 048
     Dates: start: 20121225
  16. MECOBALAMIN [Concomitant]
     Active Substance: METHYLCOBALAMIN
     Dosage: 500 MUG, TID AFTER MEAL
     Route: 048

REACTIONS (3)
  - Agranulocytosis [Recovered/Resolved]
  - Pneumonia [Recovered/Resolved]
  - Disseminated intravascular coagulation [Recovered/Resolved]

NARRATIVE: CASE EVENT DATE: 20160525
